FAERS Safety Report 5068149-0 (Version None)
Quarter: 2006Q3

REPORT INFORMATION
  Report Type: 
  Country: None (occurrence: None)
  Receive Date: 20060802
  Receipt Date: 20050216
  Transmission Date: 20061208
  Serious: Yes (Death, Hospitalization)
  Sender: FDA-Public Use
  Company Number: US-BRISTOL-MYERS SQUIBB COMPANY-12866034

PATIENT
  Age: 72 Year
  Sex: Male

DRUGS (1)
  1. ERBITUX [Suspect]
     Indication: COLORECTAL CANCER METASTATIC
     Dosage: 495 TO 792 MG. HAS BEEN DOSE-ESCALATED TO 400 MG/M2 X 2 TREATMENTS.
     Route: 042
     Dates: start: 20041217, end: 20050210

REACTIONS (1)
  - MALIGNANT NEOPLASM PROGRESSION [None]
